FAERS Safety Report 5524872-2 (Version None)
Quarter: 2007Q4

REPORT INFORMATION
  Report Type: 
  Country: None (occurrence: None)
  Receive Date: 20071116
  Receipt Date: 20071106
  Transmission Date: 20080405
  Serious: Yes (Hospitalization)
  Sender: FDA-Public Use
  Company Number: 2007JP005059

PATIENT
  Age: 76 Year
  Sex: Female

DRUGS (6)
  1. VESICARE [Suspect]
     Indication: HYPERTONIC BLADDER
     Dosage: 5 MG, ORAL
     Route: 048
     Dates: start: 20070925, end: 20071021
  2. BLOPRESS                (CANDESARTAN CILEXETIL) [Concomitant]
  3. BEPRICOR            (BEPRIDIL) [Concomitant]
  4. BONALON                (ALENDRONIC ACID) [Concomitant]
  5. WARFARIN SODIUM [Concomitant]
  6. DEPAS              (ETIZOLAM) [Concomitant]

REACTIONS (1)
  - HEPATIC FUNCTION ABNORMAL [None]
